FAERS Safety Report 16198776 (Version 1)
Quarter: 2019Q2

REPORT INFORMATION
  Report Type: Report from Study
  Country: US (occurrence: US)
  Receive Date: 20190415
  Receipt Date: 20190415
  Transmission Date: 20190711
  Serious: Yes (Hospitalization, Other)
  Sender: FDA-Public Use
  Company Number: US-APOPHARMA INC-2019AP011454

PATIENT

DRUGS (5)
  1. FERRIPROX [Suspect]
     Active Substance: DEFERIPRONE
     Indication: THALASSAEMIA
     Dosage: 66 MG/KG, UNK
     Route: 048
     Dates: start: 20161109
  2. JADENU [Concomitant]
     Active Substance: DEFERASIROX
     Indication: THALASSAEMIA
     Dosage: 14 MG/KG, QD
     Route: 065
     Dates: start: 20160804, end: 20170605
  3. JADENU [Concomitant]
     Active Substance: DEFERASIROX
     Dosage: 28 MG/KG, BID
     Route: 065
     Dates: start: 201805
  4. FERRIPROX [Suspect]
     Active Substance: DEFERIPRONE
     Indication: HAEMOCHROMATOSIS
  5. JADENU [Concomitant]
     Active Substance: DEFERASIROX
     Indication: IRON OVERLOAD
     Dosage: 28 MG/KG, BID
     Route: 065
     Dates: start: 20170606, end: 201805

REACTIONS (3)
  - Malaise [Unknown]
  - Pyrexia [Recovering/Resolving]
  - Agranulocytosis [Unknown]
